FAERS Safety Report 12222145 (Version 3)
Quarter: 2019Q2

REPORT INFORMATION
  Report Type: Spontaneous
  Country: BR (occurrence: BR)
  Receive Date: 20160330
  Receipt Date: 20190529
  Transmission Date: 20190711
  Serious: Yes (Congenital Anomaly, Other)
  Sender: FDA-Public Use
  Company Number: BR-PFIZER INC-2016176914

PATIENT

DRUGS (1)
  1. PIROXICAM. [Suspect]
     Active Substance: PIROXICAM
     Indication: HAEMORRHOIDS
     Dosage: 20 MG, DAILY
     Route: 064

REACTIONS (4)
  - Exposure during pregnancy [Recovered/Resolved]
  - Ductus arteriosus stenosis foetal [Recovered/Resolved]
  - Tricuspid valve incompetence [Recovered/Resolved]
  - Right ventricular dilatation [Recovered/Resolved]
